FAERS Safety Report 9492335 (Version 2)
Quarter: 2013Q4

REPORT INFORMATION
  Report Type: Spontaneous
  Country: IT (occurrence: IT)
  Receive Date: 20130830
  Receipt Date: 20131021
  Transmission Date: 20140711
  Serious: Yes (Other)
  Sender: FDA-Public Use
  Company Number: IT-WATSON-2013-15553

PATIENT
  Age: 84 Year
  Sex: Female

DRUGS (4)
  1. MIRTAZAPINE (UNKNOWN) [Suspect]
     Indication: DEPRESSION
     Dosage: 1 DF, DAILY
     Route: 048
     Dates: start: 20120424, end: 20130423
  2. ALPRAZOLAM (UNKNOWN) [Suspect]
     Indication: DEPRESSION
     Dosage: 1 DF, DAILY
     Route: 048
     Dates: start: 20120424, end: 20130423
  3. MIRAPEXIN [Suspect]
     Indication: PARKINSON^S DISEASE
     Dosage: 2.1 MG, DAILY
     Route: 048
     Dates: start: 20120424, end: 20130423
  4. SINEMET [Suspect]
     Indication: PARKINSON^S DISEASE
     Dosage: 1 DF, UNKNOWN
     Route: 048
     Dates: start: 20120424, end: 20130423

REACTIONS (1)
  - Sopor [Recovering/Resolving]
